FAERS Safety Report 16738032 (Version 3)
Quarter: 2022Q3

REPORT INFORMATION
  Report Type: Spontaneous
  Country: DE (occurrence: DE)
  Receive Date: 20190824
  Receipt Date: 20220706
  Transmission Date: 20221027
  Serious: Yes (Hospitalization, Other)
  Sender: FDA-Public Use
  Company Number: PHHY2018DE087559

PATIENT
  Sex: Female

DRUGS (4)
  1. METHOTREXATE [Suspect]
     Active Substance: METHOTREXATE
     Indication: Rheumatoid arthritis
     Dosage: 25 MG, UNK
     Route: 065
  2. METHOTREXATE [Suspect]
     Active Substance: METHOTREXATE
     Dosage: 20 MG, QW WEEKLY (QW)
     Route: 065
     Dates: start: 2017
  3. CERTOLIZUMAB PEGOL [Suspect]
     Active Substance: CERTOLIZUMAB PEGOL
     Indication: Rheumatoid arthritis
     Dosage: 400 MG, UNK
     Route: 065
     Dates: start: 201603, end: 2016
  4. CERTOLIZUMAB PEGOL [Suspect]
     Active Substance: CERTOLIZUMAB PEGOL
     Dosage: 200 MG, Q2W (EV 2 WEEKS(QOW) )
     Route: 058
     Dates: start: 2016, end: 20210722

REACTIONS (8)
  - Fibromyalgia [Recovered/Resolved]
  - Bursitis [Recovered/Resolved]
  - Rheumatoid nodule [Unknown]
  - Carpal tunnel syndrome [Recovered/Resolved]
  - Rheumatoid arthritis [Recovered/Resolved]
  - Nasopharyngitis [Recovered/Resolved]
  - Impaired healing [Recovered/Resolved]
  - Diarrhoea [Recovered/Resolved]

NARRATIVE: CASE EVENT DATE: 20180201
